FAERS Safety Report 7424988-X (Version None)
Quarter: 2011Q2

REPORT INFORMATION
  Report Type: 
  Country: None (occurrence: None)
  Receive Date: 20110419
  Receipt Date: 20110328
  Transmission Date: 20111010
  Serious: Yes (Hospitalization)
  Sender: FDA-Public Use
  Company Number: US-BAYER-200933595NA

PATIENT
  Age: 31 Year
  Sex: Female
  Weight: 58.957 kg

DRUGS (8)
  1. YASMIN [Suspect]
     Indication: CONTRACEPTION
     Dosage: UNK
     Dates: start: 20090804, end: 20090827
  2. FLUCONAZOLE [Concomitant]
     Dosage: UNK
     Dates: start: 20090804
  3. YASMIN [Suspect]
     Indication: PREMENSTRUAL SYNDROME
  4. NAPROXEN [Concomitant]
     Dosage: 500 MG, UNK
     Dates: start: 20090825
  5. MORPHINE [Concomitant]
     Dosage: 15 MG, UNK
  6. LACTULOSE [Concomitant]
  7. DOCUSATE SODIUM [Concomitant]
  8. NITROFURANTOIN [Concomitant]
     Dosage: UNK
     Dates: start: 20090731

REACTIONS (3)
  - PULMONARY EMBOLISM [None]
  - PAIN [None]
  - DEEP VEIN THROMBOSIS [None]
